FAERS Safety Report 8461699-6 (Version None)
Quarter: 2012Q2

REPORT INFORMATION
  Report Type: 
  Country: None (occurrence: None)
  Receive Date: 20120323
  Receipt Date: 20111123
  Transmission Date: 20120825
  Serious: Yes (Hospitalization)
  Sender: FDA-Public Use
  Company Number: 163-21880-11100989

PATIENT
  Age: 73 Year
  Sex: Female

DRUGS (13)
  1. DEXAMETHASONE [Concomitant]
  2. FOSAMAX (ALENDRONATE SODIUM) (UNKNOWN) [Concomitant]
  3. COUMADIN [Concomitant]
  4. ARANESP (DARBEPOETIN ALFA) (INHALANT) [Concomitant]
  5. GLIMEPIRIDE [Concomitant]
  6. GLIPIZIDE [Concomitant]
  7. NORVASC [Concomitant]
  8. IRON (IRON) (UNKNOWN) [Concomitant]
  9. REVLIMID [Suspect]
     Indication: MULTIPLE MYELOMA
     Dosage: 15 MG, 1 IN 1 D, PO
     Route: 048
     Dates: start: 20090301, end: 20090301
  10. METFORMIN HCL [Concomitant]
  11. ACTOS (PIOGLITAZONE) (UNKNOWN) [Concomitant]
  12. LOPRESSOR [Concomitant]
  13. CALCIUM PLUS VITAMIN D (CALCIUM D3 ^STADA^) (UNKNOWN) [Concomitant]

REACTIONS (1)
  - RASH [None]
